FAERS Safety Report 14852856 (Version 4)
Quarter: 2018Q3

REPORT INFORMATION
  Report Type: Report from Study
  Country: None (occurrence: US)
  Receive Date: 20180507
  Receipt Date: 20180903
  Transmission Date: 20181010
  Serious: Yes (Other)
  Sender: FDA-Public Use
  Company Number: US-ABBVIE-18K-163-2342149-00

PATIENT
  Age: 49 Year
  Sex: Male
  Weight: 111.23 kg

DRUGS (5)
  1. HUMIRA [Suspect]
     Active Substance: ADALIMUMAB
     Indication: PSORIATIC ARTHROPATHY
     Route: 058
  2. HUMIRA [Suspect]
     Active Substance: ADALIMUMAB
     Route: 058
     Dates: start: 201711
  3. HUMIRA [Suspect]
     Active Substance: ADALIMUMAB
     Route: 058
     Dates: start: 201801, end: 2018
  4. METHOTREXATE. [Concomitant]
     Active Substance: METHOTREXATE
     Indication: PRODUCT USED FOR UNKNOWN INDICATION
  5. HUMIRA [Suspect]
     Active Substance: ADALIMUMAB
     Route: 058
     Dates: start: 2018

REACTIONS (17)
  - Cataract [Unknown]
  - Musculoskeletal pain [Recovering/Resolving]
  - Uveitis [Unknown]
  - Cataract [Not Recovered/Not Resolved]
  - Eyelid boil [Recovering/Resolving]
  - Vitreous floaters [Unknown]
  - Eye inflammation [Not Recovered/Not Resolved]
  - Back pain [Unknown]
  - Retinal detachment [Unknown]
  - Pain in extremity [Recovering/Resolving]
  - Bone loss [Unknown]
  - Retinal disorder [Unknown]
  - Psoriatic arthropathy [Unknown]
  - Adhesion [Recovering/Resolving]
  - Ocular discomfort [Unknown]
  - Psoriasis [Recovering/Resolving]
  - Foot fracture [Unknown]

NARRATIVE: CASE EVENT DATE: 2018
